FAERS Safety Report 24031385 (Version 2)
Quarter: 2024Q3

REPORT INFORMATION
  Report Type: Spontaneous
  Country: US (occurrence: US)
  Receive Date: 20240629
  Receipt Date: 20240704
  Transmission Date: 20241017
  Serious: Yes (Life-Threatening, Hospitalization)
  Sender: AUROBINDO
  Company Number: US-MLMSERVICE-20240613-PI097457-00217-1

PATIENT
  Age: 76 Year
  Sex: Female

DRUGS (2)
  1. METFORMIN [Suspect]
     Active Substance: METFORMIN HYDROCHLORIDE
     Indication: Glucose tolerance impaired
     Dosage: 500 MILLIGRAM, TWO TIMES A DAY (BID)
     Route: 065
  2. LINAGLIPTIN [Suspect]
     Active Substance: LINAGLIPTIN
     Indication: Glucose tolerance impaired
     Dosage: 5 MILLIGRAM, ONCE A DAY
     Route: 065

REACTIONS (5)
  - Hyponatraemia [Recovered/Resolved]
  - Nausea [Unknown]
  - Hypotension [Unknown]
  - Vomiting [Unknown]
  - Hypovolaemia [Unknown]
